FAERS Safety Report 17216312 (Version 1)
Quarter: 2019Q4

REPORT INFORMATION
  Report Type: Spontaneous
  Country: US (occurrence: US)
  Receive Date: 20191230
  Receipt Date: 20191230
  Transmission Date: 20200122
  Serious: No
  Sender: FDA-Public Use
  Company Number: US-FERA PHARMACEUTICALS, LLC-2019PRG00198

PATIENT
  Sex: Male
  Weight: 130.61 kg

DRUGS (3)
  1. POMALYST [Suspect]
     Active Substance: POMALIDOMIDE
     Indication: PLASMA CELL MYELOMA
     Dosage: 4 MG, 1X/DAY FOR 21 DAYS (EVERY 28 DAYS)
     Route: 048
     Dates: start: 20190523
  2. DECADRON [Suspect]
     Active Substance: DEXAMETHASONE
     Dosage: UNK
  3. NINLARO [Concomitant]
     Active Substance: IXAZOMIB CITRATE
     Dosage: UNK

REACTIONS (1)
  - Blood glucose increased [Recovering/Resolving]

NARRATIVE: CASE EVENT DATE: 2019
